FAERS Safety Report 6018602-8 (Version None)
Quarter: 2008Q4

REPORT INFORMATION
  Report Type: 
  Country: None (occurrence: None)
  Receive Date: 20081223
  Receipt Date: 20081208
  Transmission Date: 20090506
  Serious: Yes (Other)
  Sender: FDA-Public Use
  Company Number: IE-PFIZER INC-2008100574

PATIENT

DRUGS (2)
  1. CHAMPIX [Suspect]
     Indication: SMOKING CESSATION THERAPY
     Dosage: 0.5 MG, 2X/DAY
     Route: 048
     Dates: start: 20080820
  2. EFFEXOR XR [Concomitant]
     Dosage: 75 MG, 1X/DAY
     Dates: start: 20040101

REACTIONS (7)
  - ANXIETY [None]
  - ASTHENIA [None]
  - FEAR [None]
  - LIBIDO DECREASED [None]
  - MALAISE [None]
  - MENORRHAGIA [None]
  - NAUSEA [None]
